FAERS Safety Report 11336547 (Version 2)
Quarter: 2015Q3

REPORT INFORMATION
  Report Type: Spontaneous
  Country: FR (occurrence: FR)
  Receive Date: 20150804
  Receipt Date: 20150824
  Transmission Date: 20151125
  Serious: Yes (Hospitalization)
  Sender: FDA-Public Use
  Company Number: FR-HOSPIRA-2958217

PATIENT
  Age: 63 Year
  Sex: Female

DRUGS (12)
  1. STILNOX [Suspect]
     Active Substance: ZOLPIDEM TARTRATE
     Indication: PRODUCT USED FOR UNKNOWN INDICATION
     Dosage: 0.5 FINAL DOSE, ON REQUEST
     Dates: end: 20150626
  2. ENDOXAN                            /00021101/ [Suspect]
     Active Substance: CYCLOPHOSPHAMIDE
     Indication: ACUTE LYMPHOCYTIC LEUKAEMIA (IN REMISSION)
     Route: 042
     Dates: start: 20150601, end: 20150615
  3. BACTRIM [Suspect]
     Active Substance: SULFAMETHOXAZOLE\TRIMETHOPRIM
     Indication: PRODUCT USED FOR UNKNOWN INDICATION
     Dosage: 3 FINAL DOSES
     Dates: end: 20150626
  4. DAUNORUBICINE [Concomitant]
     Active Substance: DAUNORUBICIN
     Indication: ACUTE LYMPHOCYTIC LEUKAEMIA (IN REMISSION)
     Route: 042
     Dates: start: 20150601, end: 20150603
  5. ZELTREX [Suspect]
     Active Substance: VALACYCLOVIR HYDROCHLORIDE
     Indication: PRODUCT USED FOR UNKNOWN INDICATION
     Dates: end: 20150626
  6. METHOTREXATE [Concomitant]
     Active Substance: METHOTREXATE
     Indication: ACUTE LYMPHOCYTIC LEUKAEMIA (IN REMISSION)
     Dates: start: 20150602, end: 20150608
  7. CORTANCYL [Concomitant]
     Active Substance: PREDNISONE
     Indication: ACUTE LYMPHOCYTIC LEUKAEMIA (IN REMISSION)
     Route: 048
     Dates: start: 20150601, end: 20150607
  8. METHYLPREDNISOLONE. [Concomitant]
     Active Substance: METHYLPREDNISOLONE
     Indication: ACUTE LYMPHOCYTIC LEUKAEMIA (IN REMISSION)
     Dates: start: 20150602, end: 20150608
  9. XANAX [Suspect]
     Active Substance: ALPRAZOLAM
     Indication: PRODUCT USED FOR UNKNOWN INDICATION
     Dosage: 1 FINAL DOSE
     Dates: end: 20150626
  10. KIDROLASE [Suspect]
     Active Substance: ASPARAGINASE
     Indication: ACUTE LYMPHOCYTIC LEUKAEMIA (IN REMISSION)
     Dosage: 10000 IU
     Route: 042
     Dates: start: 20150608, end: 20150624
  11. CYTARABINE. [Concomitant]
     Active Substance: CYTARABINE
     Indication: ACUTE LYMPHOCYTIC LEUKAEMIA (IN REMISSION)
     Dates: start: 20150602, end: 20150608
  12. VINCRISTINE SULFATE. [Suspect]
     Active Substance: VINCRISTINE SULFATE
     Indication: ACUTE LYMPHOCYTIC LEUKAEMIA (IN REMISSION)
     Dosage: 2 MG/ML
     Route: 042
     Dates: start: 20150601, end: 20150622

REACTIONS (7)
  - Diarrhoea [Unknown]
  - Thrombocytopenia [Not Recovered/Not Resolved]
  - Hepatitis [Recovered/Resolved]
  - Anaemia [Not Recovered/Not Resolved]
  - Asthenia [Unknown]
  - Pancytopenia [Unknown]
  - Aplasia [Recovered/Resolved]

NARRATIVE: CASE EVENT DATE: 20150622
